FAERS Safety Report 23891828 (Version 2)
Quarter: 2024Q3

REPORT INFORMATION
  Report Type: Report from Study
  Country: US (occurrence: US)
  Receive Date: 20240524
  Receipt Date: 20240712
  Transmission Date: 20241017
  Serious: Yes (Hospitalization)
  Sender: ACADIA PHARMACEUTICALS
  Company Number: US-ACADIA PHARMACEUTICALS INC.-ACA-2024-PIM-002171

PATIENT
  Age: 82 Year
  Sex: Male

DRUGS (3)
  1. NUPLAZID [Suspect]
     Active Substance: PIMAVANSERIN TARTRATE
     Indication: Parkinson^s disease
     Dosage: 34 MILLIGRAM, QD
     Route: 048
     Dates: start: 202404
  2. ATORVASTATIN CALCIUM [Suspect]
     Active Substance: ATORVASTATIN CALCIUM
  3. CARVEDILOL [Suspect]
     Active Substance: CARVEDILOL

REACTIONS (4)
  - Blood pressure increased [Unknown]
  - Headache [Unknown]
  - Hypersomnia [Unknown]
  - Hallucination [Unknown]

NARRATIVE: CASE EVENT DATE: 20240401
